FAERS Safety Report 11691971 (Version 2)
Quarter: 2015Q4

REPORT INFORMATION
  Report Type: Report from Study
  Country: CN (occurrence: CN)
  Receive Date: 20151103
  Receipt Date: 20151126
  Transmission Date: 20160304
  Serious: Yes (Other)
  Sender: FDA-Public Use
  Company Number: CN-ROCHE-1654166

PATIENT

DRUGS (7)
  1. RITUXIMAB [Suspect]
     Active Substance: RITUXIMAB
     Indication: LYMPHOMA
     Route: 065
  2. ETOPOSIDE. [Suspect]
     Active Substance: ETOPOSIDE
     Indication: LYMPHOMA
     Route: 065
  3. BLEOMYCIN [Suspect]
     Active Substance: BLEOMYCIN SULFATE
     Indication: LYMPHOMA
     Route: 065
  4. VINCRISTINE [Suspect]
     Active Substance: VINCRISTINE
     Indication: LYMPHOMA
     Route: 065
  5. CYCLOPHOSPHAMIDE. [Suspect]
     Active Substance: CYCLOPHOSPHAMIDE
     Indication: LYMPHOMA
     Route: 065
  6. PREDNISONE. [Suspect]
     Active Substance: PREDNISONE
     Indication: LYMPHOMA
     Route: 065
  7. DOXORUBICIN [Suspect]
     Active Substance: DOXORUBICIN
     Indication: LYMPHOMA
     Route: 065

REACTIONS (23)
  - Haematuria [Unknown]
  - Staphylococcal sepsis [Recovered/Resolved]
  - Lung disorder [Unknown]
  - Blood glucose increased [Recovered/Resolved]
  - Hypokalaemia [Recovered/Resolved]
  - Pneumocystis jirovecii infection [Recovered/Resolved]
  - Angina pectoris [Unknown]
  - Cardiac failure chronic [Unknown]
  - Escherichia sepsis [Recovered/Resolved]
  - Platelet count decreased [Unknown]
  - Interstitial lung disease [Unknown]
  - Mucormycosis [Recovered/Resolved]
  - Febrile neutropenia [Unknown]
  - Obstruction [Unknown]
  - Fungal infection [Recovered/Resolved]
  - Escherichia infection [Recovered/Resolved]
  - Bone marrow failure [Unknown]
  - Deep vein thrombosis [Recovered/Resolved]
  - Cerebral infarction [Unknown]
  - Neutropenic infection [Unknown]
  - Hepatobiliary disease [Unknown]
  - White blood cell count decreased [Unknown]
  - Anaemia [Unknown]
